FAERS Safety Report 7654072-1 (Version None)
Quarter: 2011Q3

REPORT INFORMATION
  Report Type: 
  Country: None (occurrence: None)
  Receive Date: 20110803
  Receipt Date: 20110722
  Transmission Date: 20111222
  Serious: No
  Sender: FDA-Public Use
  Company Number: US-BAYER-2011-064872

PATIENT
  Sex: Female

DRUGS (2)
  1. ALEVE (CAPLET) [Suspect]
     Dosage: DAILY DOSE 10 DF
     Route: 048
  2. CARDIOVASCULAR SYSTEM DRUGS [Concomitant]
     Dosage: DAILY DOSE 6 DF

REACTIONS (1)
  - NO ADVERSE EVENT [None]
